FAERS Safety Report 9282382 (Version 2)
Quarter: 2013Q3

REPORT INFORMATION
  Report Type: Spontaneous
  Country: US (occurrence: None)
  Receive Date: 20130506
  Receipt Date: 20130827
  Transmission Date: 20140515
  Serious: Yes (Life-Threatening, Hospitalization, Other)
  Sender: FDA-Public Use
  Company Number: 2013EXPUS00102

PATIENT
  Age: 29 Year
  Sex: Female
  Weight: 89.8 kg

DRUGS (17)
  1. EXPAREL [Suspect]
     Indication: POSTOPERATIVE ANALGESIA
     Dosage: 20MG WITH 100ML NORMAL SALINE, INSTILLATION
     Dates: start: 20130426, end: 20130426
  2. EPINEPHRINE [Suspect]
     Indication: APPLICATION SITE ANAESTHESIA
     Dates: start: 20130426, end: 20130426
  3. LIDOCAINE [Suspect]
     Indication: APPLICATION SITE ANAESTHESIA
     Dosage: 2%/25ML?
     Dates: start: 20130426, end: 20130426
  4. ZANTAC (RANITIDINE HYDROCHLORIDE) [Concomitant]
  5. ZOFRAN (ONDANSETRON HYDROCHLORIDE) [Concomitant]
  6. ROBAXIN (METHOCARBAMOL) [Concomitant]
  7. SCOPOLAMINE (HYOSCINE METHOBROMIDE) [Concomitant]
  8. LISINOPRIL (LISINOPRIL) [Concomitant]
  9. NORVASC (AMLODIPINE BESILATE) [Concomitant]
  10. ADIPEX (PHENTERMINE HYDROCHLORIDE) [Concomitant]
  11. ANCEF (CEFAZOLIN SODIUM) [Concomitant]
  12. REGLAN (METOCLOPRAMIDE HYDROCHLORIDE) [Concomitant]
  13. DECADRON (DEXAMETHASONE) [Concomitant]
  14. VERSED (MIDAZOLAM HYDROCHLORIDE) [Concomitant]
  15. FENTANYL (FENTANYL CITRATE) [Concomitant]
  16. ZEMURON (ROCURONIUM BROMIDE) [Concomitant]
  17. SEVOFLURANE (SEVOFLURANE) [Concomitant]

REACTIONS (10)
  - Hypotension [None]
  - Bradycardia [None]
  - Depressed level of consciousness [None]
  - Leukocytosis [None]
  - Toxicity to various agents [None]
  - Dyspnoea [None]
  - Asthenia [None]
  - Dizziness [None]
  - Hypoxia [None]
  - Nausea [None]
